FAERS Safety Report 9742680 (Version 2)
Quarter: 2015Q3

REPORT INFORMATION
  Report Type: Spontaneous
  Country: US (occurrence: US)
  Receive Date: 20131210
  Receipt Date: 20150804
  Transmission Date: 20151125
  Serious: No
  Sender: FDA-Public Use
  Company Number: US-GILEAD-2009-0025370

PATIENT
  Age: 50 Year
  Sex: Male
  Weight: 56.25 kg

DRUGS (9)
  1. ALBUTEROL. [Concomitant]
     Active Substance: ALBUTEROL
  2. VFEND [Concomitant]
     Active Substance: VORICONAZOLE
  3. NASACORT [Concomitant]
     Active Substance: TRIAMCINOLONE ACETONIDE
  4. ADVAIR HFA [Concomitant]
     Active Substance: FLUTICASONE PROPIONATE\SALMETEROL XINAFOATE
  5. CENTRUM [Concomitant]
     Active Substance: VITAMINS
  6. VERAMYST [Concomitant]
     Active Substance: FLUTICASONE FUROATE
  7. LUNESTA [Concomitant]
     Active Substance: ESZOPICLONE
  8. ALLEGRA [Concomitant]
     Active Substance: FEXOFENADINE HYDROCHLORIDE
  9. LETAIRIS [Suspect]
     Active Substance: AMBRISENTAN
     Indication: PULMONARY ARTERIAL HYPERTENSION
     Route: 048
     Dates: start: 20091102

REACTIONS (2)
  - Dizziness [Unknown]
  - Hot flush [Unknown]
